FAERS Safety Report 11801394 (Version 4)
Quarter: 2016Q2

REPORT INFORMATION
  Report Type: Spontaneous
  Country: US (occurrence: US)
  Receive Date: 20151204
  Receipt Date: 20160406
  Transmission Date: 20160815
  Serious: No
  Sender: FDA-Public Use
  Company Number: US-PFIZER INC-2015401898

PATIENT
  Age: 77 Year
  Sex: Female

DRUGS (2)
  1. LETROZOLE. [Suspect]
     Active Substance: LETROZOLE
     Dosage: 2.5 MG, DAILY
     Dates: start: 201511
  2. IBRANCE [Suspect]
     Active Substance: PALBOCICLIB
     Dosage: 125 MG, CYCLIC (21/28)
     Dates: start: 20151112

REACTIONS (9)
  - Oropharyngeal pain [Unknown]
  - Urinary tract infection [Unknown]
  - Depressed mood [Unknown]
  - Dysphonia [Unknown]
  - Muscle spasms [Unknown]
  - Arthralgia [Unknown]
  - Pyrexia [Unknown]
  - Myalgia [Unknown]
  - Fatigue [Unknown]
